FAERS Safety Report 9300795 (Version 1)
Quarter: 2013Q2

REPORT INFORMATION
  Report Type: Spontaneous
  Country: US (occurrence: None)
  Receive Date: 20130520
  Receipt Date: 20130520
  Transmission Date: 20140414
  Serious: Yes (Other)
  Sender: FDA-Public Use
  Company Number: None

PATIENT
  Age: 42 Year
  Sex: Female
  Weight: 65.77 kg

DRUGS (1)
  1. CYMBALTA [Suspect]
     Indication: COMPLEX REGIONAL PAIN SYNDROME
     Dosage: 20 MG ONCE DAILY
     Route: 048
     Dates: start: 20130513, end: 20130516

REACTIONS (10)
  - Nausea [None]
  - Abdominal pain [None]
  - Hyperhidrosis [None]
  - Somnolence [None]
  - Orthostatic hypotension [None]
  - Fatigue [None]
  - Headache [None]
  - Asthenia [None]
  - Pyrexia [None]
  - Musculoskeletal stiffness [None]
